FAERS Safety Report 10087050 (Version 1)
Quarter: 2014Q2

REPORT INFORMATION
  Report Type: Spontaneous
  Country: DE (occurrence: DE)
  Receive Date: 20140418
  Receipt Date: 20140418
  Transmission Date: 20141212
  Serious: Yes (Congenital Anomaly, Other)
  Sender: FDA-Public Use
  Company Number: DE-UCBSA-118252

PATIENT
  Age: 0 Year
  Sex: Female
  Weight: 2.47 kg

DRUGS (2)
  1. KEPPRA [Suspect]
     Indication: EPILEPSY
     Dosage: DAILY DOSE: 750 MG/D
     Route: 064
     Dates: start: 20130214, end: 2013
  2. FOLIO FORTE [Concomitant]
     Indication: PROPHYLAXIS OF NEURAL TUBE DEFECT
     Route: 064
     Dates: start: 20121226, end: 20130908

REACTIONS (3)
  - Congenital central nervous system anomaly [Not Recovered/Not Resolved]
  - Small for dates baby [Unknown]
  - Foetal exposure during pregnancy [Recovered/Resolved]
